FAERS Safety Report 7922064-0 (Version None)
Quarter: 2011Q4

REPORT INFORMATION
  Report Type: 
  Country: None (occurrence: None)
  Receive Date: 20111117
  Receipt Date: 20111108
  Transmission Date: 20120403
  Serious: Yes (Hospitalization, Other)
  Sender: FDA-Public Use
  Company Number: US-ASTRAZENECA-2011SE56734

PATIENT
  Age: 51 Year
  Sex: Female

DRUGS (36)
  1. NEURONTIN [Concomitant]
  2. ACETAMINOPHEN [Concomitant]
  3. VENTOLIN HFA [Concomitant]
     Dosage: 2 IN HALATION FOUR TIMES DAILY AS NEEDED
     Route: 055
     Dates: start: 20110323
  4. HYDROCHLOROTHIAZIDE [Concomitant]
  5. PACERONE [Concomitant]
     Route: 048
  6. VIMOVO [Suspect]
     Dosage: 500 MG/20 MG TWO TIMES DAILY
     Route: 048
     Dates: start: 20110624, end: 20110914
  7. LISINOPRIL [Concomitant]
     Dosage: DECREASED DOSE
     Route: 048
  8. LORTAB [Concomitant]
     Dosage: 7.5-500 MG TWO TIMES DAILY, AS NEEDED
     Route: 048
     Dates: start: 20110728
  9. VITAMIN C SUPPLEMENT [Concomitant]
  10. BENADRYL [Concomitant]
  11. LIPITOR [Concomitant]
     Indication: HYPERLIPIDAEMIA
     Route: 048
     Dates: start: 20110323
  12. KLOR-CON [Concomitant]
     Indication: MUSCLE SPASMS
     Dates: start: 20100603, end: 20101129
  13. SINGULAIR [Concomitant]
     Indication: BRONCHITIS
     Route: 048
     Dates: start: 20110104
  14. TOPROL-XL [Concomitant]
     Route: 048
  15. ZINC [Concomitant]
  16. CALCIUM CARBONATE AND VITAMIN D [Concomitant]
  17. ECHINACEA SUPPLEMENTS [Concomitant]
  18. NITROGLYCERIN [Concomitant]
     Route: 060
  19. VITAMIN D SUPPLEMENTS [Concomitant]
  20. VITAMIN E [Concomitant]
  21. ASPIRIN [Concomitant]
     Route: 048
  22. ALBUTEROL SULFATE [Concomitant]
     Dosage: 2.5 MG / 3 ML, 3 PUUFS EVERY 4 HOURS AS NEEDED
     Route: 055
     Dates: start: 20110204
  23. FOLIC ACID [Concomitant]
  24. MELATONIN [Concomitant]
  25. PROVENTIL [Concomitant]
     Dosage: 2.5 MG/ 3 ML, 1 FOUR TIMES DAILY AS NEEDED
     Dates: start: 20090504
  26. ULTRAM [Concomitant]
     Indication: RHEUMATOID ARTHRITIS
     Dosage: 2 TABLETS EVERY 6-8 HOURS AS NEEDED
     Dates: start: 20100603
  27. NITROSTAT [Concomitant]
     Indication: CHEST PAIN
     Route: 060
     Dates: start: 20110302
  28. DIAZEPAM [Concomitant]
     Route: 048
     Dates: start: 20110601
  29. BACTRIM DS [Concomitant]
     Dosage: 800-160MG, TWO TIMES DAILY
     Route: 048
     Dates: start: 20110728
  30. LISINOPRIL [Concomitant]
     Route: 048
  31. PLAVIX [Concomitant]
     Route: 048
  32. NEURONTIN [Concomitant]
     Dates: start: 20090803, end: 20100129
  33. VITAMIN D [Concomitant]
  34. ULTRAM [Concomitant]
     Indication: PAIN
     Dosage: 2 TABLETS EVERY 6-8 HOURS AS NEEDED
     Dates: start: 20100603
  35. MULTI-VITAMIN [Concomitant]
  36. PROAIR HFA [Concomitant]
     Dosage: 2 PUFF FOUR TIMES DAILY AS NEEDED
     Route: 055
     Dates: start: 20100903

REACTIONS (18)
  - ARRHYTHMIA [None]
  - LYMPHADENOPATHY [None]
  - HEADACHE [None]
  - DRUG HYPERSENSITIVITY [None]
  - OROPHARYNGEAL PAIN [None]
  - GASTROOESOPHAGEAL REFLUX DISEASE [None]
  - NAUSEA [None]
  - MITRAL VALVE INCOMPETENCE [None]
  - SYNCOPE [None]
  - CAROTID ARTERY STENOSIS [None]
  - NON-CARDIAC CHEST PAIN [None]
  - DYSPEPSIA [None]
  - HEART RATE INCREASED [None]
  - HYPERTENSION [None]
  - RHINORRHOEA [None]
  - COUGH [None]
  - PALPITATIONS [None]
  - FATIGUE [None]
